FAERS Safety Report 5263832-6 (Version None)
Quarter: 2007Q1

REPORT INFORMATION
  Report Type: 
  Country: None (occurrence: None)
  Receive Date: 20070313
  Receipt Date: 20070307
  Transmission Date: 20070707
  Serious: Yes (Hospitalization, Other)
  Sender: FDA-Public Use
  Company Number: ZA-GLAXOSMITHKLINE-B0460156A

PATIENT
  Age: 24 Day
  Sex: Male
  Weight: 51 kg

DRUGS (8)
  1. ZIDOVUDINE [Suspect]
     Indication: HIV INFECTION
     Dosage: 55MG TWICE PER DAY
     Route: 048
     Dates: start: 20070207, end: 20070220
  2. LAMIVUDINE [Suspect]
     Indication: HIV INFECTION
     Dosage: 15MG TWICE PER DAY
     Route: 048
     Dates: start: 20070207, end: 20070220
  3. KALETRA [Suspect]
     Indication: HIV INFECTION
     Dosage: .9ML TWICE PER DAY
     Route: 048
     Dates: start: 20070207, end: 20070220
  4. PREVNAR [Concomitant]
     Dosage: .5ML PER DAY
     Route: 030
  5. CO-TRIMOXAZOLE [Concomitant]
  6. TAZOCIN [Concomitant]
  7. AMIKACIN [Concomitant]
  8. CEFOTAXIME [Concomitant]

REACTIONS (10)
  - ACIDOSIS [None]
  - ANAEMIA [None]
  - BICYTOPENIA [None]
  - CONVULSION [None]
  - DEHYDRATION [None]
  - GASTROENTERITIS [None]
  - HYPERNATRAEMIA [None]
  - HYPOKALAEMIA [None]
  - PYREXIA [None]
  - SEPSIS [None]
